FAERS Safety Report 12423547 (Version 1)
Quarter: 2016Q2

REPORT INFORMATION
  Report Type: Spontaneous
  Country: US (occurrence: None)
  Receive Date: 20160531
  Receipt Date: 20160531
  Transmission Date: 20160815
  Serious: No
  Sender: FDA-Public Use
  Company Number: None

PATIENT
  Age: 13 Year
  Sex: Female
  Weight: 58.97 kg

DRUGS (3)
  1. CLARITIN [Concomitant]
     Active Substance: LORATADINE
  2. OXYCODONE [Concomitant]
     Active Substance: OXYCODONE
  3. ROXICODONE [Suspect]
     Active Substance: OXYCODONE HYDROCHLORIDE
     Indication: SURGERY
     Dosage: 2 TABLET(S) EVERY 4 HOURS TAKEN BY MOUTH
     Route: 048
     Dates: start: 20160524

REACTIONS (2)
  - Mental impairment [None]
  - Pruritus generalised [None]

NARRATIVE: CASE EVENT DATE: 20160528
